FAERS Safety Report 10266661 (Version 1)
Quarter: 2014Q2

REPORT INFORMATION
  Report Type: Report from Study
  Country: CA (occurrence: CA)
  Receive Date: 20140629
  Receipt Date: 20140629
  Transmission Date: 20141212
  Serious: Yes (Other)
  Sender: FDA-Public Use
  Company Number: CA-BRISTOL-MYERS SQUIBB COMPANY-20927844

PATIENT
  Age: 38 Year
  Sex: Female

DRUGS (7)
  1. ABATACEPT SUBQ INJECTION 125MG/ML [Suspect]
     Indication: RHEUMATOID ARTHRITIS
     Dosage: 1DF=125(UNITS NOS)
     Route: 058
     Dates: start: 20140210
  2. ORENCIA [Suspect]
     Indication: RHEUMATOID ARTHRITIS
     Dosage: 1DF=1000 UNITS
     Route: 042
     Dates: start: 20140210
  3. SULFASALAZINE [Concomitant]
  4. MELOXICAM [Concomitant]
  5. VITAMIN D [Concomitant]
  6. IRON [Concomitant]
  7. VITAMIN B12 [Concomitant]

REACTIONS (1)
  - Upper limb fracture [Not Recovered/Not Resolved]
